FAERS Safety Report 21388295 (Version 4)
Quarter: 2022Q4

REPORT INFORMATION
  Report Type: Report from Study
  Country: CR (occurrence: None)
  Receive Date: 20220928
  Receipt Date: 20221221
  Transmission Date: 20230112
  Serious: Yes (Hospitalization)
  Sender: FDA-Public Use
  Company Number: CR-ROCHE-3187334

PATIENT
  Age: 70 Year
  Sex: Male
  Weight: 68 kg

DRUGS (3)
  1. ATEZOLIZUMAB [Suspect]
     Active Substance: ATEZOLIZUMAB
     Indication: Squamous cell carcinoma of lung
     Dosage: DOSE LAST STUDY DRUG ADMIN PRIOR AE IS 1680 MG. DOSE LAST STUDY DRUG ADMIN PRIOR SAE IS 1680 MG. STA
     Route: 041
     Dates: start: 20220704
  2. OMEPRAZOLE [Concomitant]
     Active Substance: OMEPRAZOLE
     Indication: Gastrooesophageal reflux disease
     Route: 048
     Dates: start: 2021
  3. CEFOTAXIME [Concomitant]
     Active Substance: CEFOTAXIME SODIUM
     Indication: Urinary tract infection
     Route: 042
     Dates: start: 20220922, end: 20220929

REACTIONS (1)
  - COVID-19 [Recovered/Resolved]

NARRATIVE: CASE EVENT DATE: 20220922
